FAERS Safety Report 10365574 (Version 1)
Quarter: 2014Q3

REPORT INFORMATION
  Report Type: Spontaneous
  Country: IT (occurrence: IT)
  Receive Date: 20140806
  Receipt Date: 20140806
  Transmission Date: 20150326
  Serious: Yes (Life-Threatening)
  Sender: FDA-Public Use
  Company Number: IT-ACTAVIS-2014-16928

PATIENT
  Age: 68 Year
  Sex: Female
  Weight: 140 kg

DRUGS (2)
  1. AVASTIN [Suspect]
     Active Substance: BEVACIZUMAB
     Indication: BREAST CANCER METASTATIC
     Dosage: 1 DF, CYCLICAL
     Route: 042
     Dates: start: 20140516, end: 20140613
  2. PACLITAXEL (UNKNOWN) [Suspect]
     Active Substance: PACLITAXEL
     Indication: BREAST CANCER METASTATIC
     Dosage: 1 DF, WEEKLY
     Route: 042
     Dates: start: 20140516, end: 20140613

REACTIONS (4)
  - Renal failure acute [Unknown]
  - Loss of consciousness [Unknown]
  - Cyanosis [Unknown]
  - Hepatic failure [Unknown]

NARRATIVE: CASE EVENT DATE: 20140613
